FAERS Safety Report 23825920 (Version 1)
Quarter: 2024Q2

REPORT INFORMATION
  Report Type: Spontaneous
  Country: US (occurrence: None)
  Receive Date: 20240506
  Receipt Date: 20240506
  Transmission Date: 20240716
  Serious: Yes (Hospitalization)
  Sender: FDA-Public Use
  Company Number: None

PATIENT
  Age: 73 Year
  Sex: Male
  Weight: 81 kg

DRUGS (1)
  1. LISINOPRIL [Suspect]
     Active Substance: LISINOPRIL
     Indication: Blood pressure measurement
     Dosage: FREQUENCY : DAILY;?
     Route: 048
     Dates: start: 20220306, end: 20220716

REACTIONS (4)
  - Angioedema [None]
  - Rash [None]
  - Rash [None]
  - Lip swelling [None]

NARRATIVE: CASE EVENT DATE: 20220716
